FAERS Safety Report 9541168 (Version 1)
Quarter: 2013Q3

REPORT INFORMATION
  Report Type: Spontaneous
  Country: US (occurrence: US)
  Receive Date: 20130923
  Receipt Date: 20130923
  Transmission Date: 20140515
  Serious: Yes (Other)
  Sender: FDA-Public Use
  Company Number: US-JNJFOC-20130905800

PATIENT
  Age: 64 Year
  Sex: Male
  Weight: 61.24 kg

DRUGS (2)
  1. LISTERINE ORIGINAL [Suspect]
     Indication: PRODUCT USED FOR UNKNOWN INDICATION
     Dosage: A LOT
     Route: 049
  2. ASTHMA MEDICATION [Concomitant]
     Indication: ASTHMA
     Route: 065

REACTIONS (2)
  - Asthma [Not Recovered/Not Resolved]
  - Cough [Not Recovered/Not Resolved]
